FAERS Safety Report 10372053 (Version 1)
Quarter: 2014Q3

REPORT INFORMATION
  Report Type: Spontaneous
  Country: PR (occurrence: PR)
  Receive Date: 20140808
  Receipt Date: 20140808
  Transmission Date: 20150326
  Serious: Yes (Other)
  Sender: FDA-Public Use
  Company Number: PR-BAYER-2014-113655

PATIENT
  Age: 77 Year
  Sex: Female
  Weight: 69.84 kg

DRUGS (1)
  1. MILK OF MAGNESIA CHERRY [Suspect]
     Active Substance: MAGNESIUM HYDROXIDE
     Indication: CONSTIPATION
     Dosage: 2 TABLESPOON, ONCE
     Route: 048
     Dates: start: 20140727, end: 20140727

REACTIONS (3)
  - Blood glucose increased [Recovered/Resolved]
  - Wrong technique in drug usage process [None]
  - Dizziness [Recovered/Resolved]

NARRATIVE: CASE EVENT DATE: 20140727
